FAERS Safety Report 4414626-2 (Version None)
Quarter: 2004Q3

REPORT INFORMATION
  Report Type: 
  Country: None (occurrence: None)
  Receive Date: 20040729
  Receipt Date: 20040716
  Transmission Date: 20050211
  Serious: Yes (Other)
  Sender: FDA-Public Use
  Company Number: 2004048650

PATIENT

DRUGS (5)
  1. LIPITOR [Suspect]
     Indication: ILL-DEFINED DISORDER
     Dosage: 10 MG (1 IN 1 D), ORAL
     Route: 048
  2. TACROLIMUS (TACROLIMUS) [Concomitant]
  3. CANDESARTAN CILEXETIL (ILL-DEFINED DISORDER) [Concomitant]
  4. TRAMADOL HCL [Concomitant]
  5. METHYLPREDNISOLONE [Concomitant]

REACTIONS (1)
  - LEUKOPENIA [None]
